FAERS Safety Report 7280501-1 (Version None)
Quarter: 2011Q1

REPORT INFORMATION
  Report Type: 
  Country: None (occurrence: None)
  Receive Date: 20110208
  Receipt Date: 20110126
  Transmission Date: 20110831
  Serious: Yes (Other)
  Sender: FDA-Public Use
  Company Number: PHHY2011GB05857

PATIENT
  Age: 87 Year
  Sex: Female

DRUGS (3)
  1. WARFARIN [Suspect]
     Dosage: UNK
  2. WARFARIN [Suspect]
     Indication: ATRIAL FIBRILLATION
     Dosage: 0.5 MG
  3. AMOXICILLIN [Suspect]
     Indication: URINARY TRACT INFECTION

REACTIONS (3)
  - RECTAL HAEMORRHAGE [None]
  - INTERNATIONAL NORMALISED RATIO INCREASED [None]
  - DRUG INTERACTION [None]
